FAERS Safety Report 4713058-7 (Version None)
Quarter: 2005Q3

REPORT INFORMATION
  Report Type: 
  Country: None (occurrence: None)
  Receive Date: 20050701
  Receipt Date: 20040722
  Transmission Date: 20060218
  Serious: Yes (Other)
  Sender: FDA-Public Use
  Company Number: 2004049968

PATIENT
  Age: 80 Year
  Sex: Male
  Weight: 71.2147 kg

DRUGS (4)
  1. ZOLOFT [Suspect]
     Indication: MOOD SWINGS
     Dosage: 25 MG (25 MG, 1 IN D)
     Dates: start: 20040201
  2. DONEPEZIL HCL [Suspect]
     Indication: ILL-DEFINED DISORDER
     Dates: start: 20040101
  3. ALL OTHER THERAPEUTIC PRODUCTS (ALL OTHER THERAPEUTIC PRODUCTS) [Concomitant]
  4. LEVOTHYROXINE SODIUM [Concomitant]

REACTIONS (6)
  - DIZZINESS [None]
  - DYSPNOEA [None]
  - HYPERSOMNIA [None]
  - MALAISE [None]
  - STOMACH DISCOMFORT [None]
  - VOMITING [None]
